FAERS Safety Report 25675029 (Version 5)
Quarter: 2025Q4

REPORT INFORMATION
  Report Type: Report from Study
  Country: PE (occurrence: PE)
  Receive Date: 20250813
  Receipt Date: 20251001
  Transmission Date: 20260118
  Serious: Yes (Other)
  Sender: NOVARTIS
  Company Number: PE-002147023-NVSC2025PE056027

PATIENT
  Age: 57 Year
  Sex: Female

DRUGS (4)
  1. KISQALI [Suspect]
     Active Substance: RIBOCICLIB SUCCINATE
     Indication: Breast cancer metastatic
     Dosage: 600 MG (3), QD (BY MOUTH)
     Route: 048
     Dates: start: 20250323
  2. KISQALI [Suspect]
     Active Substance: RIBOCICLIB SUCCINATE
     Indication: Breast cancer
     Dosage: 2 DOSAGE FORM
     Route: 065
  3. KISQALI [Suspect]
     Active Substance: RIBOCICLIB SUCCINATE
     Dosage: 400 MG, QD
     Route: 048
  4. IRON [Concomitant]
     Active Substance: IRON
     Indication: Haemoglobin decreased
     Dosage: UNK
     Route: 065

REACTIONS (7)
  - Neutropenia [Unknown]
  - Swelling [Unknown]
  - Fatigue [Unknown]
  - Decreased immune responsiveness [Unknown]
  - Diplopia [Unknown]
  - Visual impairment [Unknown]
  - Chest discomfort [Unknown]

NARRATIVE: CASE EVENT DATE: 20250301
